FAERS Safety Report 19356324 (Version 1)
Quarter: 2021Q2

REPORT INFORMATION
  Report Type: Spontaneous
  Country: BE (occurrence: BE)
  Receive Date: 20210602
  Receipt Date: 20210602
  Transmission Date: 20210717
  Serious: Yes (Other)
  Sender: FDA-Public Use
  Company Number: BE-SUN PHARMACEUTICAL INDUSTRIES LTD-2021RR-298712

PATIENT
  Age: 41 Year
  Sex: Female

DRUGS (6)
  1. CALCIUM GLUCONATE. [Suspect]
     Active Substance: CALCIUM GLUCONATE
     Indication: HYPOCALCAEMIA
     Dosage: 4500 MILLIGRAM, QD
     Route: 042
  2. CHLORTHALIDONE. [Suspect]
     Active Substance: CHLORTHALIDONE
     Indication: HYPOCALCAEMIA
     Dosage: 50 MILLIGRAM, DAILY
     Route: 065
  3. CALCIUM CITRATE [Suspect]
     Active Substance: CALCIUM CITRATE
     Indication: HYPOCALCAEMIA
     Dosage: 6000 MILLIGRAM, QID
     Route: 048
  4. TERIPARATIDE [Suspect]
     Active Substance: TERIPARATIDE
     Indication: HYPOCALCAEMIA
     Dosage: 20 MICROGRAM, DAILY
     Route: 058
  5. COLECALCIFEROL [Suspect]
     Active Substance: CHOLECALCIFEROL
     Indication: HYPOCALCAEMIA
     Dosage: 300000 INTERNATIONAL UNITS, IN TOTAL
     Route: 065
  6. CALCITRIOL. [Suspect]
     Active Substance: CALCITRIOL
     Indication: HYPOCALCAEMIA
     Dosage: 2 MICROGRAM, TID
     Route: 048

REACTIONS (4)
  - Headache [Unknown]
  - Myalgia [Unknown]
  - Fatigue [Unknown]
  - Therapeutic product effect incomplete [Unknown]
